FAERS Safety Report 7401848-1 (Version None)
Quarter: 2011Q2

REPORT INFORMATION
  Report Type: 
  Country: None (occurrence: None)
  Receive Date: 20110408
  Receipt Date: 20101123
  Transmission Date: 20111010
  Serious: Yes (Death, Other)
  Sender: FDA-Public Use
  Company Number: US-BAYER-200922406NA

PATIENT
  Sex: Female
  Weight: 115 kg

DRUGS (16)
  1. ASPIRIN [Concomitant]
     Dosage: 325 MG, QD
     Route: 048
  2. PLAVIX [Concomitant]
     Dosage: 75 MG, QD
     Route: 048
     Dates: end: 20071030
  3. TRASYLOL [Suspect]
     Indication: CORONARY ARTERY BYPASS
     Dosage: 2ML TEST DOSE; 200ML PUMP PRIME, 200ML BOLUS OVER 30 MINS, THEN 50ML/HR FOR 4 HRS
     Route: 042
     Dates: start: 20071105, end: 20071105
  4. MANNITOL [Concomitant]
     Dosage: UNK
     Dates: start: 20071105, end: 20071105
  5. RED BLOOD CELLS [Concomitant]
  6. NOVOLOG [Concomitant]
     Dosage: 16 UNK, UNK
     Route: 058
     Dates: start: 20070820
  7. PROTAMINE SULFATE [Concomitant]
     Dosage: UNK
     Route: 042
  8. BENADRYL [Concomitant]
     Dosage: UNK
     Dates: start: 20071105, end: 20071105
  9. LASIX [Concomitant]
     Dosage: `40 MG, QD
  10. HEPARIN [Concomitant]
     Route: 042
  11. ZOCOR [Concomitant]
     Dosage: UNK
     Route: 048
     Dates: end: 20071030
  12. LIPITOR [Concomitant]
     Dosage: 40 MG, QD
     Route: 048
  13. DOBUTAMINE HCL [Concomitant]
     Dosage: UNK
     Dates: end: 20071105
  14. LISINOPRIL [Concomitant]
     Dosage: UNK
     Dates: end: 20071030
  15. LANTUS [Concomitant]
     Dosage: 85 U, HS
     Route: 058
  16. ALBUMIN (HUMAN) [Concomitant]
     Dosage: UNK
     Dates: end: 20071105

REACTIONS (14)
  - MULTI-ORGAN FAILURE [None]
  - UNEVALUABLE EVENT [None]
  - EMOTIONAL DISTRESS [None]
  - RENAL FAILURE [None]
  - RENAL INJURY [None]
  - ANXIETY [None]
  - INJURY [None]
  - DEATH [None]
  - STRESS [None]
  - FEAR [None]
  - VENTRICULAR TACHYCARDIA [None]
  - RENAL IMPAIRMENT [None]
  - PAIN [None]
  - ANHEDONIA [None]
